FAERS Safety Report 10929530 (Version 1)
Quarter: 2015Q1

REPORT INFORMATION
  Report Type: Spontaneous
  Country: US (occurrence: None)
  Receive Date: 20150318
  Receipt Date: 20150318
  Transmission Date: 20150721
  Serious: Yes (Hospitalization, Disabling, Other)
  Sender: FDA-Public Use
  Company Number: None

PATIENT
  Age: 62 Year
  Sex: Female
  Weight: 86.18 kg

DRUGS (16)
  1. FOLIC ACID PROTONIX [Concomitant]
  2. POTASIUM [Concomitant]
  3. DUCOLAT [Concomitant]
  4. PROBIOTIC [Concomitant]
     Active Substance: PROBIOTICS NOS
  5. ATENINAL [Concomitant]
  6. COZAAR [Concomitant]
     Active Substance: LOSARTAN POTASSIUM
  7. SYNTHROID [Concomitant]
     Active Substance: LEVOTHYROXINE SODIUM
  8. LIPITOR [Concomitant]
     Active Substance: ATORVASTATIN CALCIUM
  9. SPIRIVA [Concomitant]
     Active Substance: TIOTROPIUM BROMIDE MONOHYDRATE
  10. REMICADE [Suspect]
     Active Substance: INFLIXIMAB
     Indication: PSORIATIC ARTHROPATHY
     Dosage: INFUSION EVERY 7 WEEKS INTO A VEIN
     Dates: start: 20141106
  11. SULFASALIZINE [Concomitant]
  12. CQ10 [Concomitant]
     Active Substance: UBIDECARENONE
  13. VITIAM D3 [Concomitant]
  14. LASIX [Concomitant]
     Active Substance: FUROSEMIDE
  15. BAYER ASPRIN 81 [Concomitant]
  16. SYMBACORT [Concomitant]

REACTIONS (13)
  - Nasopharyngitis [None]
  - Body temperature increased [None]
  - Back pain [None]
  - Influenza like illness [None]
  - Nausea [None]
  - Oxygen saturation decreased [None]
  - Pain in extremity [None]
  - Eye pruritus [None]
  - Peripheral swelling [None]
  - Infusion related reaction [None]
  - Cellulitis [None]
  - Dysstasia [None]
  - Dyspnoea [None]
